FAERS Safety Report 8943419 (Version 1)
Quarter: 2012Q4

REPORT INFORMATION
  Report Type: 
  Country: US (occurrence: US)
  Receive Date: 20121204
  Receipt Date: 20121204
  Transmission Date: 20130627
  Serious: Yes (Other)
  Sender: FDA-Public Use
  Company Number: US-SANOFI-AVENTIS-2012SA086679

PATIENT
  Age: 62 Year
  Sex: Male

DRUGS (10)
  1. PLAVIX [Suspect]
     Route: 048
  2. ASPIRIN [Suspect]
     Route: 065
  3. ANTINEOPLASTIC AGENTS [Suspect]
     Indication: CHRONIC MYELOGENOUS LEUKEMIA
     Route: 065
     Dates: end: 20121030
  4. CASODEX [Concomitant]
  5. VALSARTAN [Concomitant]
  6. LANTUS [Concomitant]
  7. LISINOPRIL [Concomitant]
  8. LOVASTATIN [Concomitant]
  9. METOPROLOL [Concomitant]
  10. OMEPRAZOLE [Concomitant]

REACTIONS (2)
  - Pulmonary oedema [Unknown]
  - Bone marrow oedema [Unknown]
